FAERS Safety Report 15358474 (Version 2)
Quarter: 2018Q3

REPORT INFORMATION
  Report Type: Spontaneous
  Country: CN (occurrence: CN)
  Receive Date: 20180906
  Receipt Date: 20180910
  Transmission Date: 20181010
  Serious: Yes (Other)
  Sender: FDA-Public Use
  Company Number: CN-009507513-1809CHN000543

PATIENT
  Age: 92 Year
  Sex: Male
  Weight: 65 kg

DRUGS (1)
  1. JANUVIA [Suspect]
     Active Substance: SITAGLIPTIN PHOSPHATE
     Indication: BLOOD GLUCOSE INCREASED
     Dosage: 10 MG, QD
     Route: 048
     Dates: start: 20180607, end: 20180718

REACTIONS (5)
  - Pericardial effusion [Unknown]
  - Angioedema [Recovered/Resolved]
  - Decreased appetite [Unknown]
  - Product use in unapproved indication [Unknown]
  - Hydrothorax [Recovered/Resolved]

NARRATIVE: CASE EVENT DATE: 2018
